FAERS Safety Report 19704062 (Version 1)
Quarter: 2021Q3

REPORT INFORMATION
  Report Type: Spontaneous
  Country: NL (occurrence: NL)
  Receive Date: 20210816
  Receipt Date: 20210816
  Transmission Date: 20211014
  Serious: Yes (Other)
  Sender: FDA-Public Use
  Company Number: NL-HIKMA PHARMACEUTICALS USA INC.-NL-H14001-21-03587

PATIENT
  Sex: Male

DRUGS (6)
  1. CEFOTAXIME [Suspect]
     Active Substance: CEFOTAXIME SODIUM
     Indication: ESCHERICHIA INFECTION
     Dosage: UNKNOWN
     Route: 065
  2. PARENTERAL NUTRITION [Suspect]
     Active Substance: AMINO ACIDS\DEXTROSE\ELECTROLYTES NOS
     Indication: PRODUCT USED FOR UNKNOWN INDICATION
     Dosage: UNKNOWN
     Route: 065
  3. AMIKACIN. [Suspect]
     Active Substance: AMIKACIN
     Indication: NECROTISING COLITIS
     Dosage: UNKNOWN
     Route: 065
  4. AMOXICILLIN/CLAVULANATE [Suspect]
     Active Substance: AMOXICILLIN\CLAVULANATE POTASSIUM
     Indication: NECROTISING COLITIS
     Dosage: UNKNOWN
     Route: 065
  5. VANCOMYCIN [Suspect]
     Active Substance: VANCOMYCIN
     Indication: DEVICE RELATED SEPSIS
     Dosage: UNKNOWN
     Route: 065
  6. METRONIDAZOLE. [Suspect]
     Active Substance: METRONIDAZOLE

REACTIONS (1)
  - Neonatal cholestasis [Recovered/Resolved]
